FAERS Safety Report 8789751 (Version 2)
Quarter: 2012Q4

REPORT INFORMATION
  Report Type: Spontaneous
  Country: CA (occurrence: None)
  Receive Date: 20120906
  Receipt Date: 20121126
  Transmission Date: 20130627
  Serious: Yes (Other)
  Sender: FDA-Public Use
  Company Number: 2012AP002740

PATIENT
  Sex: Male

DRUGS (3)
  1. APO-RANITIDINE [Suspect]
     Indication: DRUG USE FOR UNKNOWN INDICATION
  2. ASPIRIN (ACETYLSALICYLIC ACID) [Concomitant]
  3. CODEINE (CODEINE) [Concomitant]

REACTIONS (2)
  - Haematochezia [None]
  - Product substitution issue [None]
